FAERS Safety Report 9305935 (Version 2)
Quarter: 2013Q2

REPORT INFORMATION
  Report Type: Spontaneous
  Country: IT (occurrence: IT)
  Receive Date: 20130523
  Receipt Date: 20130528
  Transmission Date: 20140414
  Serious: Yes (Hospitalization)
  Sender: FDA-Public Use
  Company Number: IT-PFIZER INC-2013158188

PATIENT
  Age: 21 Year
  Sex: Female

DRUGS (2)
  1. XANAX [Suspect]
     Dosage: 15 MG, SINGLE
     Route: 048
     Dates: start: 20130416, end: 20130416
  2. EFEXOR [Concomitant]
     Dosage: UNK
     Route: 048

REACTIONS (3)
  - Drug abuse [Unknown]
  - Confusional state [Unknown]
  - Sopor [Unknown]
